FAERS Safety Report 9954579 (Version 1)
Quarter: 2014Q1

REPORT INFORMATION
  Report Type: Spontaneous
  Country: US (occurrence: US)
  Receive Date: 20140304
  Receipt Date: 20140304
  Transmission Date: 20141002
  Serious: No
  Sender: FDA-Public Use
  Company Number: US-ABBVIE-13P-163-1084008-00

PATIENT
  Age: 91 Year
  Sex: Female
  Weight: 108.96 kg

DRUGS (17)
  1. HUMIRA [Suspect]
     Indication: RHEUMATOID ARTHRITIS
     Route: 058
     Dates: start: 201008, end: 201303
  2. CELEBREX [Concomitant]
     Indication: RHEUMATOID ARTHRITIS
  3. CYMBALTA [Concomitant]
     Indication: NEUROPATHY PERIPHERAL
  4. LEFLUNOMIDE [Concomitant]
     Indication: RHEUMATOID ARTHRITIS
  5. GABAPENTIN [Concomitant]
     Indication: NEUROPATHY PERIPHERAL
  6. HYDROCYCHLIROQUINE [Concomitant]
     Indication: RHEUMATOID ARTHRITIS
  7. TRIAMTERENE WITH HCTZ [Concomitant]
     Indication: HYPERTENSION
     Dosage: 37.5/25
  8. PREDNISONE [Concomitant]
     Indication: RHEUMATOID ARTHRITIS
  9. VERAPAMIL [Concomitant]
     Indication: HYPERTENSION
  10. ADDERALL [Concomitant]
     Indication: NARCOLEPSY
  11. MODASINIL [Concomitant]
     Indication: NARCOLEPSY
     Dosage: 1 IN AM 1/2 AT NOON
  12. NORTRIPTYLINE [Concomitant]
     Indication: NARCOLEPSY
     Dosage: AT BEDTO,E
  13. TRIZANIDINE HCL [Concomitant]
     Indication: MUSCLE SPASMS
     Dosage: AT BEDTIME
  14. VITAMIN COMPLEX [Concomitant]
     Indication: PRODUCT USED FOR UNKNOWN INDICATION
  15. SYMBICORT [Concomitant]
     Indication: ASTHMA
  16. SPRIVIA [Concomitant]
     Indication: ASTHMA
  17. PROAIR HFA [Concomitant]
     Indication: ASTHMA

REACTIONS (12)
  - Gait disturbance [Not Recovered/Not Resolved]
  - Pustular psoriasis [Not Recovered/Not Resolved]
  - Erythema [Not Recovered/Not Resolved]
  - Skin exfoliation [Not Recovered/Not Resolved]
  - Skin exfoliation [Not Recovered/Not Resolved]
  - Rash pustular [Not Recovered/Not Resolved]
  - Skin burning sensation [Not Recovered/Not Resolved]
  - Pain in extremity [Not Recovered/Not Resolved]
  - Pain of skin [Not Recovered/Not Resolved]
  - Pain in extremity [Not Recovered/Not Resolved]
  - Arthralgia [Not Recovered/Not Resolved]
  - Back pain [Not Recovered/Not Resolved]
